FAERS Safety Report 20980583 (Version 2)
Quarter: 2022Q3

REPORT INFORMATION
  Report Type: Report from Study
  Country: US (occurrence: US)
  Receive Date: 20220620
  Receipt Date: 20220704
  Transmission Date: 20221026
  Serious: No
  Sender: FDA-Public Use
  Company Number: US-AMGEN-USASL2022103385

PATIENT
  Age: 46 Year
  Sex: Female
  Weight: 61.23 kg

DRUGS (2)
  1. NEULASTA [Suspect]
     Active Substance: PEGFILGRASTIM
     Indication: Pancreatic carcinoma
     Dosage: 6 MILLIGRAM, Q2WK
     Route: 065
  2. NEULASTA [Suspect]
     Active Substance: PEGFILGRASTIM
     Indication: Neutropenia
     Dosage: 6 MILLIGRAM, Q2WK
     Route: 065

REACTIONS (4)
  - Accidental exposure to product [Unknown]
  - Device issue [Unknown]
  - Device adhesion issue [Unknown]
  - Inappropriate schedule of product administration [Unknown]

NARRATIVE: CASE EVENT DATE: 20220610
